FAERS Safety Report 18460246 (Version 2)
Quarter: 2021Q1

REPORT INFORMATION
  Report Type: Spontaneous
  Country: US (occurrence: US)
  Receive Date: 20201104
  Receipt Date: 20210208
  Transmission Date: 20210419
  Serious: Yes (Hospitalization, Other)
  Sender: FDA-Public Use
  Company Number: US-GLAXOSMITHKLINE-US2020AMR217311

PATIENT
  Sex: Female

DRUGS (1)
  1. BENLYSTA [Suspect]
     Active Substance: BELIMUMAB
     Indication: SYSTEMIC LUPUS ERYTHEMATOSUS
     Dosage: 200 MG/ML, WE

REACTIONS (9)
  - Pneumonia [Unknown]
  - Blood potassium decreased [Unknown]
  - Spinal myelogram abnormal [Unknown]
  - Escherichia infection [Unknown]
  - Blood calcium decreased [Unknown]
  - Pain [Unknown]
  - Product dose omission issue [Unknown]
  - Asthenia [Unknown]
  - Fluid replacement [Unknown]
